FAERS Safety Report 25220479 (Version 1)
Quarter: 2025Q2

REPORT INFORMATION
  Report Type: Spontaneous
  Country: PL (occurrence: PL)
  Receive Date: 20250421
  Receipt Date: 20250421
  Transmission Date: 20250717
  Serious: Yes (Hospitalization)
  Sender: AIPING PHARMACEUTICAL
  Company Number: PL-AIPING-2025AILIT00036

PATIENT
  Age: 19 Year
  Sex: Female

DRUGS (1)
  1. ESCITALOPRAM OXALATE [Suspect]
     Active Substance: ESCITALOPRAM OXALATE
     Indication: Depression
     Route: 065

REACTIONS (1)
  - Stress cardiomyopathy [Recovered/Resolved]
